FAERS Safety Report 8223554-6 (Version None)
Quarter: 2012Q1

REPORT INFORMATION
  Report Type: 
  Country: None (occurrence: None)
  Receive Date: 20120316
  Receipt Date: 20120308
  Transmission Date: 20120608
  Serious: Yes (Hospitalization)
  Sender: FDA-Public Use
  Company Number: 1223685

PATIENT
  Age: 54 Year
  Sex: Male

DRUGS (2)
  1. DOPAMINE HCL [Suspect]
     Indication: HYPOTENSION
     Dosage: 10 MCG/KG/MIN, INTRAVENOUS DRIP; 20 MCG/KG/MIN, INTRAVENOUS DRIP
     Route: 041
  2. FLUID [Concomitant]

REACTIONS (5)
  - MYOCARDIAL ISCHAEMIA [None]
  - CONDITION AGGRAVATED [None]
  - HYPOTENSION [None]
  - TACHYCARDIA [None]
  - CORONARY ARTERY STENOSIS [None]
